FAERS Safety Report 8989845 (Version 1)
Quarter: 2012Q4

REPORT INFORMATION
  Report Type: 
  Country: US (occurrence: US)
  Receive Date: 20121228
  Receipt Date: 20121228
  Transmission Date: 20130627
  Serious: Yes (Other)
  Sender: FDA-Public Use
  Company Number: US-JNJFOC-20121210966

PATIENT
  Sex: Male

DRUGS (1)
  1. LISTERINE UNSPECIFIED [Suspect]
     Indication: FEELING DRUNK
     Dosage: 2 bottles a day
     Route: 048

REACTIONS (3)
  - Intentional drug misuse [Unknown]
  - Incorrect route of drug administration [Unknown]
  - Off label use [None]
